FAERS Safety Report 5633543-3 (Version None)
Quarter: 2008Q1

REPORT INFORMATION
  Report Type: 
  Country: None (occurrence: None)
  Receive Date: 20080221
  Receipt Date: 20080211
  Transmission Date: 20080703
  Serious: Yes (Hospitalization)
  Sender: FDA-Public Use
  Company Number: IT-PFIZER INC-2008005984

PATIENT
  Sex: Male

DRUGS (2)
  1. NEURONTIN [Suspect]
     Indication: BACK PAIN
     Dosage: DAILY DOSE:200MG
     Dates: start: 20080111, end: 20080111
  2. TRAMADOL HCL [Suspect]
     Indication: BACK PAIN
     Dosage: DAILY DOSE:50MG
     Route: 048
     Dates: start: 20080111, end: 20080111

REACTIONS (3)
  - DIZZINESS [None]
  - ERYTHEMA [None]
  - NAUSEA [None]
